FAERS Safety Report 20493160 (Version 1)
Quarter: 2022Q1

REPORT INFORMATION
  Report Type: Report from Study
  Country: CO (occurrence: CO)
  Receive Date: 20220220
  Receipt Date: 20220220
  Transmission Date: 20220423
  Serious: Yes (Death)
  Sender: FDA-Public Use
  Company Number: CO-NOVARTISPH-NVSC2022CO038320

PATIENT
  Sex: Female

DRUGS (3)
  1. RUXOLITINIB [Suspect]
     Active Substance: RUXOLITINIB
     Indication: Myelofibrosis
     Dosage: UNK, Q12H
     Route: 048
  2. JADENU [Suspect]
     Active Substance: DEFERASIROX
     Indication: Iron overload
     Dosage: UNK, QD
     Route: 048
  3. JADENU [Suspect]
     Active Substance: DEFERASIROX
     Indication: Myelodysplastic syndrome

REACTIONS (1)
  - Death [Fatal]
